FAERS Safety Report 4333597-0 (Version None)
Quarter: 2004Q1

REPORT INFORMATION
  Report Type: 
  Country: None (occurrence: None)
  Receive Date: 20040329
  Receipt Date: 20040128
  Transmission Date: 20041129
  Serious: No
  Sender: FDA-Public Use
  Company Number: 04P-163-0247382-00

PATIENT
  Age: 71 Year
  Sex: Female
  Weight: 44.4525 kg

DRUGS (9)
  1. HUMIRA [Suspect]
     Indication: PSORIATIC ARTHROPATHY
     Dosage: 40 MG, 1 IN 2 WK, SUBCUTANEOUS
     Route: 058
     Dates: start: 20040109
  2. LABETALOL HCL [Concomitant]
  3. QUINAPRIL HYDROCHLORIDE [Concomitant]
  4. PREDNISONE [Concomitant]
  5. ALENDRONATE SODIUM [Concomitant]
  6. RALOXIFENE HCL [Concomitant]
  7. SERTRALINE HYDROCHLORIDE [Concomitant]
  8. DOCUSATE SODIUM [Concomitant]
  9. GLUCOSAMINE SULFATE [Concomitant]

REACTIONS (5)
  - DRUG INEFFECTIVE [None]
  - FACE INJURY [None]
  - FATIGUE [None]
  - INJECTION SITE BURNING [None]
  - INJECTION SITE STINGING [None]
